FAERS Safety Report 9399774 (Version 1)
Quarter: 2013Q3

REPORT INFORMATION
  Report Type: Spontaneous
  Country: GB (occurrence: GB)
  Receive Date: 20130710
  Receipt Date: 20130710
  Transmission Date: 20140515
  Serious: Yes (Other)
  Sender: FDA-Public Use
  Company Number: 2013-002172

PATIENT
  Age: 25 Year
  Sex: Male

DRUGS (2)
  1. MESALAZINE [Suspect]
     Indication: COLITIS ULCERATIVE
  2. AZATHIOPRINE [Concomitant]

REACTIONS (7)
  - Organising pneumonia [None]
  - Chest pain [None]
  - Pleuritic pain [None]
  - Productive cough [None]
  - Night sweats [None]
  - Weight decreased [None]
  - Colitis ulcerative [None]
